FAERS Safety Report 16878319 (Version 3)
Quarter: 2020Q1

REPORT INFORMATION
  Report Type: Report from Study
  Country: US (occurrence: US)
  Receive Date: 20191002
  Receipt Date: 20200327
  Transmission Date: 20200409
  Serious: Yes (Other)
  Sender: FDA-Public Use
  Company Number: US-GLAXOSMITHKLINE-2019-TSO02466-US

PATIENT
  Sex: Female

DRUGS (2)
  1. NIRAPARIB [Suspect]
     Active Substance: NIRAPARIB
     Indication: MALIGNANT PERITONEAL NEOPLASM
     Dosage: 100 MG, IN THE MORNING WITH FOOD
     Route: 048
     Dates: start: 20190219
  2. NIRAPARIB [Suspect]
     Active Substance: NIRAPARIB
     Dosage: 100 MG, QD
     Route: 048

REACTIONS (8)
  - Squamous cell carcinoma [Unknown]
  - Wrist fracture [Unknown]
  - Lymphadenectomy [Unknown]
  - Fall [Unknown]
  - Underdose [Unknown]
  - Carbohydrate antigen 125 increased [Unknown]
  - Anaemia [Unknown]
  - Tendon discomfort [Unknown]
